FAERS Safety Report 5485137-0 (Version None)
Quarter: 2007Q4

REPORT INFORMATION
  Report Type: 
  Country: None (occurrence: None)
  Receive Date: 20071011
  Receipt Date: 20071001
  Transmission Date: 20080405
  Serious: Yes (Hospitalization)
  Sender: FDA-Public Use
  Company Number: 2007BI018883

PATIENT
  Age: 60 Year
  Sex: Male
  Weight: 63.5036 kg

DRUGS (2)
  1. AVONEX [Suspect]
     Indication: MULTIPLE SCLEROSIS
     Dosage: 30 UG;QW;IM
     Route: 030
     Dates: start: 20020101, end: 20030101
  2. AVONEX [Suspect]
     Indication: MULTIPLE SCLEROSIS
     Dosage: 30 UG;QW;IM
     Route: 030
     Dates: start: 20030602, end: 20070801

REACTIONS (7)
  - EROSIVE OESOPHAGITIS [None]
  - GAIT DISTURBANCE [None]
  - GASTRIC PERFORATION [None]
  - GASTROINTESTINAL GANGRENE [None]
  - GASTROOESOPHAGEAL REFLUX DISEASE [None]
  - UNEVALUABLE EVENT [None]
  - WEIGHT DECREASED [None]
